FAERS Safety Report 5018011-4 (Version None)
Quarter: 2006Q2

REPORT INFORMATION
  Report Type: 
  Country: None (occurrence: None)
  Receive Date: 20060605
  Receipt Date: 20060524
  Transmission Date: 20061013
  Serious: Yes (Hospitalization)
  Sender: FDA-Public Use
  Company Number: CA-GILEAD-2006-0009641

PATIENT
  Sex: Male
  Weight: 63.2 kg

DRUGS (6)
  1. TRUVADA [Suspect]
     Indication: HIV INFECTION
     Route: 048
     Dates: start: 20060410
  2. SAQUINAVIR [Suspect]
     Indication: HIV INFECTION
     Route: 048
     Dates: start: 20060410
  3. RITONAVIR [Concomitant]
     Indication: HIV INFECTION
     Route: 048
     Dates: start: 20060410
  4. SEPTRA [Concomitant]
     Dates: start: 20051201
  5. ATIVAN [Concomitant]
     Dates: start: 20060101
  6. RISPERIDONE [Concomitant]
     Dates: start: 20060101

REACTIONS (3)
  - FACIAL PALSY [None]
  - IMMUNE RECONSTITUTION SYNDROME [None]
  - TOXOPLASMOSIS [None]
